FAERS Safety Report 7207796-4 (Version None)
Quarter: 2011Q1

REPORT INFORMATION
  Report Type: 
  Country: None (occurrence: None)
  Receive Date: 20110104
  Receipt Date: 20101229
  Transmission Date: 20110831
  Serious: Yes (Hospitalization, Other)
  Sender: FDA-Public Use
  Company Number: AU-AMGEN-AUSSP2010012391

PATIENT

DRUGS (15)
  1. ENBREL [Suspect]
     Indication: RHEUMATOID ARTHRITIS
     Dosage: WEEKLY ON WEDNESDAYS
  2. PREDNISONE [Concomitant]
  3. OSTELIN [Concomitant]
  4. SOMAC [Concomitant]
  5. FOLIC ACID [Concomitant]
  6. OXYCONTIN [Concomitant]
  7. OLMETEC [Concomitant]
  8. ENDEP [Concomitant]
  9. COLOXYL WITH SENNA [Concomitant]
  10. CORAS [Concomitant]
  11. MOVICOL [Concomitant]
  12. CAPADEX [Concomitant]
  13. ASPIRIN [Concomitant]
  14. CRESTOR [Concomitant]
  15. METHOTREXATE SODIUM [Concomitant]

REACTIONS (2)
  - KIDNEY INFECTION [None]
  - FRACTURE [None]
